FAERS Safety Report 5506895-2 (Version None)
Quarter: 2007Q4

REPORT INFORMATION
  Report Type: 
  Country: None (occurrence: None)
  Receive Date: 20071105
  Receipt Date: 20071028
  Transmission Date: 20080405
  Serious: Yes (Other)
  Sender: FDA-Public Use
  Company Number: US-PFIZER INC-2007090838

PATIENT
  Sex: Female

DRUGS (8)
  1. ZYRTEC [Suspect]
     Indication: NASAL CONGESTION
     Dosage: DAILY DOSE:10MG
     Dates: start: 20000101, end: 20070901
  2. ALL OTHER THERAPEUTIC PRODUCTS [Concomitant]
  3. ZETIA [Concomitant]
  4. LEXAPRO [Concomitant]
  5. DITROPAN XL [Concomitant]
  6. ACIPHEX [Concomitant]
  7. ECOTRIN [Concomitant]
  8. NASONEX [Concomitant]

REACTIONS (3)
  - DERMATITIS [None]
  - HYPERSENSITIVITY [None]
  - SKIN LESION [None]
